FAERS Safety Report 15403349 (Version 1)
Quarter: 2018Q3

REPORT INFORMATION
  Report Type: Report from Study
  Country: MX (occurrence: DO)
  Receive Date: 20180919
  Receipt Date: 20180919
  Transmission Date: 20181010
  Serious: Yes (Other)
  Sender: FDA-Public Use
  Company Number: MX-SA-2018SA236510

PATIENT
  Age: 87 Year
  Sex: Male
  Weight: 77 kg

DRUGS (1)
  1. INSULIN GLARGINE [Suspect]
     Active Substance: INSULIN GLARGINE
     Dosage: 6 IU, QD
     Route: 058
     Dates: start: 2015

REACTIONS (1)
  - Dementia Alzheimer^s type [Not Recovered/Not Resolved]
